FAERS Safety Report 9143801 (Version 1)
Quarter: 2013Q1

REPORT INFORMATION
  Report Type: Report from Study
  Country: CA (occurrence: CA)
  Receive Date: 20130306
  Receipt Date: 20130306
  Transmission Date: 20140127
  Serious: Yes (Other)
  Sender: FDA-Public Use
  Company Number: CA-ROCHE-1197851

PATIENT
  Age: 59 Year
  Sex: Female
  Weight: 100 kg

DRUGS (11)
  1. ACTEMRA [Suspect]
     Indication: RHEUMATOID ARTHRITIS
     Route: 042
     Dates: start: 20101216
  2. NAPROXEN [Concomitant]
  3. DIAMICRON [Concomitant]
  4. JANUVIA [Concomitant]
  5. METHOTREXATE [Concomitant]
  6. RISPERDAL [Concomitant]
  7. CELEXA [Concomitant]
  8. GLICLAZIDE [Concomitant]
  9. ASA (ACETYLSALICYLIC ACID) [Concomitant]
  10. CRESTOR [Concomitant]
  11. SYNTHROID [Concomitant]

REACTIONS (1)
  - Heart rate increased [Unknown]
